FAERS Safety Report 19574064 (Version 2)
Quarter: 2021Q3

REPORT INFORMATION
  Report Type: Spontaneous
  Country: FR (occurrence: FR)
  Receive Date: 20210718
  Receipt Date: 20210903
  Transmission Date: 20211014
  Serious: Yes (Other)
  Sender: FDA-Public Use
  Company Number: FR-JNJFOC-20210724308

PATIENT
  Age: 81 Year
  Sex: Male

DRUGS (2)
  1. ZYTIGA [Suspect]
     Active Substance: ABIRATERONE ACETATE
     Route: 048
     Dates: start: 20210706
  2. ZYTIGA [Suspect]
     Active Substance: ABIRATERONE ACETATE
     Indication: PROSTATE CANCER
     Route: 048
     Dates: end: 202105

REACTIONS (13)
  - Loss of consciousness [Unknown]
  - Weight decreased [Unknown]
  - Wrong technique in product usage process [Unknown]
  - Dizziness [Unknown]
  - Vomiting [Unknown]
  - Arthralgia [Unknown]
  - Altered state of consciousness [Unknown]
  - Nausea [Unknown]
  - Myalgia [Unknown]
  - Dysphagia [Unknown]
  - Fall [Unknown]
  - Prostate cancer [Unknown]
  - Drug ineffective [Unknown]
